FAERS Safety Report 5546748-7 (Version None)
Quarter: 2007Q4

REPORT INFORMATION
  Report Type: 
  Country: None (occurrence: None)
  Receive Date: 20071123
  Receipt Date: 20061222
  Transmission Date: 20080405
  Serious: Yes (Disabling, Other)
  Sender: FDA-Public Use
  Company Number: US-JNJFOC-20061206771

PATIENT
  Age: 58 Year
  Sex: Male

DRUGS (4)
  1. LEVAQUIN [Suspect]
     Indication: BACTERIAL INFECTION
     Dates: start: 20040916
  2. LEVAQUIN [Suspect]
     Indication: BACTERIAL INFECTION
     Dates: start: 20041116
  3. LEVAQUIN [Suspect]
     Indication: BACTERIAL INFECTION
     Dates: start: 20041120
  4. LEVAQUIN [Suspect]
     Indication: BACTERIAL INFECTION
     Dates: start: 20041130

REACTIONS (1)
  - NEUROPATHY PERIPHERAL [None]
